FAERS Safety Report 20472245 (Version 6)
Quarter: 2022Q2

REPORT INFORMATION
  Report Type: Spontaneous
  Country: US (occurrence: US)
  Receive Date: 20220214
  Receipt Date: 20220425
  Transmission Date: 20220721
  Serious: No
  Sender: FDA-Public Use
  Company Number: US-JNJFOC-20220213415

PATIENT
  Age: 82 Year
  Sex: Female
  Weight: 80 kg

DRUGS (12)
  1. UPTRAVI [Suspect]
     Active Substance: SELEXIPAG
     Indication: Pulmonary arterial hypertension
     Route: 048
     Dates: start: 20220119
  2. UPTRAVI [Suspect]
     Active Substance: SELEXIPAG
     Route: 048
     Dates: start: 20220202
  3. UPTRAVI [Suspect]
     Active Substance: SELEXIPAG
     Route: 048
     Dates: start: 202111
  4. UPTRAVI [Suspect]
     Active Substance: SELEXIPAG
     Route: 048
  5. UPTRAVI [Suspect]
     Active Substance: SELEXIPAG
     Route: 048
  6. UPTRAVI [Suspect]
     Active Substance: SELEXIPAG
     Route: 048
  7. AMBRISENTAN [Suspect]
     Active Substance: AMBRISENTAN
     Indication: Pulmonary hypertension
     Route: 048
     Dates: start: 20180326
  8. AMBRISENTAN [Suspect]
     Active Substance: AMBRISENTAN
     Route: 048
     Dates: start: 20180326
  9. LASIX [Suspect]
     Active Substance: FUROSEMIDE
     Indication: Product used for unknown indication
     Route: 065
     Dates: start: 20220210
  10. ADEMPAS [Suspect]
     Active Substance: RIOCIGUAT
     Indication: Product used for unknown indication
     Route: 065
  11. BUMED [Concomitant]
     Indication: Product used for unknown indication
  12. GARDEN [Concomitant]
     Indication: Product used for unknown indication

REACTIONS (17)
  - Headache [Unknown]
  - Arthralgia [Unknown]
  - Flushing [Unknown]
  - Dizziness [Recovering/Resolving]
  - Vision blurred [Recovering/Resolving]
  - Hypotension [Not Recovered/Not Resolved]
  - Myalgia [Unknown]
  - Insomnia [Unknown]
  - Arthralgia [Unknown]
  - Product use issue [Unknown]
  - Illness [Recovered/Resolved]
  - Peripheral swelling [Recovered/Resolved]
  - Nasopharyngitis [Unknown]
  - Pain [Unknown]
  - Malaise [Unknown]
  - Product dose omission issue [Unknown]
  - Hypertension [Unknown]

NARRATIVE: CASE EVENT DATE: 20220219
